FAERS Safety Report 8470866 (Version 5)
Quarter: 2013Q2

REPORT INFORMATION
  Report Type: Spontaneous
  Country: US (occurrence: US)
  Receive Date: 20120321
  Receipt Date: 20130501
  Transmission Date: 20140414
  Serious: Yes (Hospitalization, Other)
  Sender: FDA-Public Use
  Company Number: US-ASTRAZENECA-2009SE19621

PATIENT
  Age: 74 Year
  Sex: Female
  Weight: 65.8 kg

DRUGS (5)
  1. NEXIUM [Suspect]
     Indication: HIATUS HERNIA
     Route: 048
  2. SEROQUEL [Suspect]
     Indication: DAYDREAMING
     Route: 048
  3. SEROQUEL [Suspect]
     Indication: NERVOUSNESS
     Route: 048
  4. SEROQUEL [Suspect]
     Indication: DAYDREAMING
     Route: 048
  5. SEROQUEL [Suspect]
     Indication: NERVOUSNESS
     Route: 048

REACTIONS (10)
  - Myocardial infarction [Unknown]
  - Cerebrovascular accident [Unknown]
  - Malaise [Unknown]
  - Adverse event [Unknown]
  - Fatigue [Unknown]
  - Hernia [Unknown]
  - Multiple allergies [Unknown]
  - Malaise [Unknown]
  - Off label use [Unknown]
  - Drug dose omission [Unknown]
